FAERS Safety Report 24529985 (Version 3)
Quarter: 2024Q4

REPORT INFORMATION
  Report Type: Spontaneous
  Country: US (occurrence: US)
  Receive Date: 20241021
  Receipt Date: 20241218
  Transmission Date: 20250114
  Serious: Yes (Hospitalization)
  Sender: PFIZER
  Company Number: US-PFIZER INC-PV202400135449

PATIENT
  Age: 62 Year
  Sex: Female

DRUGS (1)
  1. IBRANCE [Suspect]
     Active Substance: PALBOCICLIB
     Dosage: 75 MG

REACTIONS (7)
  - Pneumonia [Unknown]
  - Nausea [Recovering/Resolving]
  - Fatigue [Unknown]
  - Neoplasm progression [Unknown]
  - Brain fog [Unknown]
  - Eating disorder [Unknown]
  - Hypersomnia [Unknown]
